FAERS Safety Report 19404798 (Version 1)
Quarter: 2021Q2

REPORT INFORMATION
  Report Type: Spontaneous
  Country: GB (occurrence: GB)
  Receive Date: 20210611
  Receipt Date: 20210611
  Transmission Date: 20210717
  Serious: Yes (Other)
  Sender: FDA-Public Use
  Company Number: GB-PFIZER INC-2021617556

PATIENT
  Age: 35 Year
  Sex: Male

DRUGS (2)
  1. SAYANA PRESS [Suspect]
     Active Substance: MEDROXYPROGESTERONE\MEDROXYPROGESTERONE ACETATE
     Dosage: UNK
  2. TOZINAMERAN. [Suspect]
     Active Substance: TOZINAMERAN
     Indication: COVID-19 IMMUNISATION
     Dosage: 1ST DOSE, SINGLE DOSE
     Dates: start: 20210526, end: 20210526

REACTIONS (7)
  - Injury [Unknown]
  - Syncope [Recovered/Resolved]
  - Skin abrasion [Unknown]
  - Blood pressure decreased [Unknown]
  - Swelling face [Unknown]
  - Illness [Unknown]
  - Head injury [Unknown]

NARRATIVE: CASE EVENT DATE: 20210526
